FAERS Safety Report 14613065 (Version 2)
Quarter: 2018Q2

REPORT INFORMATION
  Report Type: Spontaneous
  Country: IN (occurrence: IN)
  Receive Date: 20180308
  Receipt Date: 20180425
  Transmission Date: 20180711
  Serious: Yes (Hospitalization, Other)
  Sender: FDA-Public Use
  Company Number: IN-DRREDDYS-USA/IND/18/0096788

PATIENT
  Age: 54 Year
  Sex: Male
  Weight: 80 kg

DRUGS (1)
  1. ATORVASTATIN [Suspect]
     Active Substance: ATORVASTATIN
     Indication: DYSLIPIDAEMIA
     Dosage: AT NIGHT
     Route: 065

REACTIONS (14)
  - Dysphonia [Recovered/Resolved]
  - Swelling face [Recovered/Resolved]
  - Oedema peripheral [Recovered/Resolved]
  - Transaminases increased [Recovered/Resolved]
  - Rhabdomyolysis [Recovered/Resolved]
  - Condition aggravated [Recovered/Resolved]
  - Lipids increased [Recovered/Resolved]
  - Blood creatine phosphokinase increased [Recovered/Resolved]
  - Renal function test abnormal [Recovered/Resolved]
  - Sinus bradycardia [Recovered/Resolved]
  - Hepatic steatosis [Recovered/Resolved]
  - Blood lactate dehydrogenase increased [Recovered/Resolved]
  - Overweight [Recovered/Resolved]
  - Microcytic anaemia [Recovered/Resolved]
